FAERS Safety Report 13495629 (Version 1)
Quarter: 2017Q2

REPORT INFORMATION
  Report Type: Spontaneous
  Country: TN (occurrence: TN)
  Receive Date: 20170428
  Receipt Date: 20170428
  Transmission Date: 20170830
  Serious: Yes (Hospitalization, Other)
  Sender: FDA-Public Use
  Company Number: TN-STRIDES ARCOLAB LIMITED-2017SP007050

PATIENT

DRUGS (3)
  1. VANCOMYCIN [Suspect]
     Active Substance: VANCOMYCIN
     Indication: SPLENIC INFARCTION
     Dosage: 60 MG/KG, QD
     Route: 065
  2. CEFOTAXIME [Concomitant]
     Active Substance: CEFOTAXIME SODIUM
     Indication: SPLENIC INFARCTION
     Dosage: 200 MG/KG, QD
     Route: 065
  3. PARACETAMOL [Concomitant]
     Active Substance: ACETAMINOPHEN
     Indication: PYREXIA
     Dosage: UNK, UNKNOWN
     Route: 065

REACTIONS (11)
  - Lymphadenopathy [Recovered/Resolved]
  - Pyrexia [Recovered/Resolved]
  - Rash maculo-papular [Recovered/Resolved]
  - Rash pruritic [Recovered/Resolved]
  - Hepatocellular injury [Recovered/Resolved]
  - Periorbital oedema [Recovered/Resolved]
  - Skin exfoliation [Recovered/Resolved]
  - Odynophagia [Recovered/Resolved]
  - Drug reaction with eosinophilia and systemic symptoms [Recovered/Resolved]
  - Human herpesvirus 6 infection [Unknown]
  - General physical health deterioration [Recovered/Resolved]
